FAERS Safety Report 12819133 (Version 2)
Quarter: 2016Q4

REPORT INFORMATION
  Report Type: Spontaneous
  Country: US (occurrence: US)
  Receive Date: 20161006
  Receipt Date: 20161011
  Transmission Date: 20170207
  Serious: Yes (Other)
  Sender: FDA-Public Use
  Company Number: US-PFIZER INC-2016462384

PATIENT
  Age: 30 Year
  Sex: Female
  Weight: 62 kg

DRUGS (4)
  1. LEVOXYL [Suspect]
     Active Substance: LEVOTHYROXINE SODIUM
     Dosage: 157
  2. GABAPENTIN. [Concomitant]
     Active Substance: GABAPENTIN
     Indication: NEUROPATHY PERIPHERAL
  3. LEVOXYL [Suspect]
     Active Substance: LEVOTHYROXINE SODIUM
     Indication: HYPOTHYROIDISM
     Dosage: 130 OR 135
     Dates: start: 201604
  4. LEVOXYL [Suspect]
     Active Substance: LEVOTHYROXINE SODIUM
     Dosage: 300

REACTIONS (11)
  - Gait disturbance [Unknown]
  - Hypersomnia [Unknown]
  - Drug dose omission [Recovered/Resolved]
  - Dysphagia [Unknown]
  - Fatigue [Unknown]
  - Pharyngeal oedema [Recovering/Resolving]
  - Drug ineffective [Unknown]
  - Irritability [Unknown]
  - Headache [Unknown]
  - Malaise [Unknown]
  - Tri-iodothyronine decreased [Unknown]

NARRATIVE: CASE EVENT DATE: 20160928
